FAERS Safety Report 20091535 (Version 1)
Quarter: 2021Q4

REPORT INFORMATION
  Report Type: Spontaneous
  Country: CA (occurrence: CA)
  Receive Date: 20211119
  Receipt Date: 20211119
  Transmission Date: 20220303
  Serious: Yes (Death)
  Sender: FDA-Public Use
  Company Number: CA-TEVA-2021-CA-1978686

PATIENT
  Age: 28 Year
  Sex: Male
  Weight: 127 kg

DRUGS (4)
  1. ALCOHOL [Suspect]
     Active Substance: ALCOHOL
     Route: 065
  2. FENTANYL [Suspect]
     Active Substance: FENTANYL
     Route: 065
  3. COCAINE [Suspect]
     Active Substance: COCAINE
     Route: 065
  4. METHAMPHETAMINE [Concomitant]
     Active Substance: METHAMPHETAMINE

REACTIONS (2)
  - Postmortem blood drug level [Fatal]
  - Toxicity to various agents [Fatal]
